FAERS Safety Report 17863328 (Version 2)
Quarter: 2021Q1

REPORT INFORMATION
  Report Type: Other
  Country: IN (occurrence: IN)
  Receive Date: 20200604
  Receipt Date: 20210208
  Transmission Date: 20210419
  Serious: Yes (Death, Other)
  Sender: FDA-Public Use
  Company Number: IN-ROCHE-2577303

PATIENT

DRUGS (3)
  1. AZATHIOPRINE. [Suspect]
     Active Substance: AZATHIOPRINE
     Indication: LUPUS NEPHRITIS
     Route: 065
  2. MYCOPHENOLATE MOFETIL. [Suspect]
     Active Substance: MYCOPHENOLATE MOFETIL
     Indication: LUPUS NEPHRITIS
     Route: 065
  3. CYCLOPHOSPHAMIDE. [Suspect]
     Active Substance: CYCLOPHOSPHAMIDE
     Indication: LUPUS NEPHRITIS
     Route: 065

REACTIONS (16)
  - Pancreatitis [Unknown]
  - Diabetes mellitus [Unknown]
  - Sepsis [Fatal]
  - Menstruation irregular [Unknown]
  - Urinary tract infection [Fatal]
  - Device related sepsis [Fatal]
  - Cataract [Unknown]
  - Leukopenia [Unknown]
  - Diarrhoea [Unknown]
  - Pneumonia [Fatal]
  - Osteonecrosis [Unknown]
  - Infection [Unknown]
  - Alopecia [Unknown]
  - Alanine aminotransferase increased [Unknown]
  - Aspartate aminotransferase increased [Unknown]
  - Pancytopenia [Unknown]
